FAERS Safety Report 10698145 (Version 1)
Quarter: 2014Q4

REPORT INFORMATION
  Report Type: Spontaneous
  Country: US (occurrence: None)
  Receive Date: 20141223
  Receipt Date: 20141223
  Transmission Date: 20150529
  Serious: No
  Sender: FDA-Public Use
  Company Number: 1000071946

PATIENT
  Age: 69 Year
  Sex: Female

DRUGS (5)
  1. TRILEPTAL (OXCARAZEPINE) (OXCARBAZEPINE) [Concomitant]
  2. NITROFURANTOIN (NITROFURANTOIN) (NITROFURANTOIN) [Concomitant]
  3. LINZESS [Suspect]
     Active Substance: LINACLOTIDE
     Indication: CONSTIPATION
     Dosage: 290 MCG (290 MCG, 1 IN 1 D), ORAL
     Route: 048
     Dates: start: 20141027
  4. COUMADIN (WARFARIN) (WARFARIN) [Concomitant]
  5. PRILOSEC (OMEPRAZOLE) OMEPRAZOLE) [Concomitant]

REACTIONS (5)
  - Off label use [None]
  - Diarrhoea [None]
  - Nausea [None]
  - Malaise [None]
  - Headache [None]

NARRATIVE: CASE EVENT DATE: 20141027
